FAERS Safety Report 5354049-5 (Version None)
Quarter: 2007Q2

REPORT INFORMATION
  Report Type: 
  Country: None (occurrence: None)
  Receive Date: 20070612
  Receipt Date: 20070607
  Transmission Date: 20071010
  Serious: Yes (Other)
  Sender: FDA-Public Use
  Company Number: A0654593A

PATIENT
  Age: 21 Year
  Sex: Female

DRUGS (2)
  1. LAMICTAL [Suspect]
     Indication: EPILEPSY
     Dosage: 100MG VARIABLE DOSE
     Route: 048
  2. SYNTHROID [Suspect]
     Indication: HYPOTHYROIDISM
     Route: 048

REACTIONS (8)
  - ALOPECIA [None]
  - CONVULSION [None]
  - DRUG INEFFECTIVE [None]
  - DYSPHONIA [None]
  - FALL [None]
  - HYPOTHYROIDISM [None]
  - VERTIGO [None]
  - WEIGHT INCREASED [None]
